FAERS Safety Report 23911100 (Version 1)
Quarter: 2024Q2

REPORT INFORMATION
  Report Type: Spontaneous
  Country: CN (occurrence: CN)
  Receive Date: 20240528
  Receipt Date: 20240528
  Transmission Date: 20240715
  Serious: Yes (Other)
  Sender: FDA-Public Use
  Company Number: CN-PFIZER INC-PV202400068558

PATIENT
  Age: 90 Year
  Sex: Female
  Weight: 43 kg

DRUGS (1)
  1. VORICONAZOLE [Suspect]
     Active Substance: VORICONAZOLE
     Indication: Bronchopulmonary aspergillosis
     Dosage: 200 MG, 2X/DAY
     Route: 041
     Dates: start: 20240211, end: 20240223

REACTIONS (1)
  - Dysphoria [Unknown]

NARRATIVE: CASE EVENT DATE: 20240218
